FAERS Safety Report 15235174 (Version 1)
Quarter: 2018Q3

REPORT INFORMATION
  Report Type: Spontaneous
  Country: US (occurrence: US)
  Receive Date: 20180803
  Receipt Date: 20180803
  Transmission Date: 20181010
  Serious: No
  Sender: FDA-Public Use
  Company Number: US-ASTRAZENECA-2018SE88396

PATIENT
  Age: 4197 Week
  Sex: Female
  Weight: 70.8 kg

DRUGS (3)
  1. BYETTA [Suspect]
     Active Substance: EXENATIDE
     Indication: TYPE 2 DIABETES MELLITUS
     Route: 058
  2. BYDUREON [Suspect]
     Active Substance: EXENATIDE
     Indication: TYPE 2 DIABETES MELLITUS
     Route: 058
     Dates: start: 20180420
  3. ONGLYZA [Suspect]
     Active Substance: SAXAGLIPTIN HYDROCHLORIDE
     Indication: TYPE 2 DIABETES MELLITUS
     Route: 048
     Dates: start: 201508, end: 20151030

REACTIONS (17)
  - Pain in extremity [Recovered/Resolved]
  - Weight fluctuation [Unknown]
  - Hypertension [Unknown]
  - Blood glucose increased [Unknown]
  - Therapy cessation [Unknown]
  - Injection site mass [Unknown]
  - Adverse drug reaction [Unknown]
  - Circumstance or information capable of leading to medication error [Unknown]
  - Rash [Recovered/Resolved]
  - Arthralgia [Recovered/Resolved]
  - Application site pain [Recovered/Resolved]
  - Asthenia [Recovered/Resolved]
  - Injection site extravasation [Unknown]
  - Injection site pain [Unknown]
  - Device issue [Unknown]
  - Pain [Recovered/Resolved]
  - Dry skin [Recovered/Resolved]

NARRATIVE: CASE EVENT DATE: 20151016
